FAERS Safety Report 14493205 (Version 1)
Quarter: 2018Q1

REPORT INFORMATION
  Report Type: Spontaneous
  Country: US (occurrence: US)
  Receive Date: 20180205
  Receipt Date: 20180205
  Transmission Date: 20180509
  Serious: Yes (Hospitalization, Other)
  Sender: FDA-Public Use
  Company Number: None

PATIENT

DRUGS (2)
  1. POTASSIUM CHLORIDE. [Suspect]
     Active Substance: POTASSIUM CHLORIDE
  2. RAMIPRIL. [Suspect]
     Active Substance: RAMIPRIL

REACTIONS (6)
  - Nausea [None]
  - Diarrhoea [None]
  - Hyperkalaemia [None]
  - Urinary tract infection [None]
  - Malaise [None]
  - Acute kidney injury [None]
